FAERS Safety Report 8002696-4 (Version None)
Quarter: 2011Q4

REPORT INFORMATION
  Report Type: 
  Country: None (occurrence: None)
  Receive Date: 20111222
  Receipt Date: 20111215
  Transmission Date: 20120403
  Serious: Yes (Hospitalization, Other)
  Sender: FDA-Public Use
  Company Number: US-MERCK-1108USA01136

PATIENT
  Age: 73 Year
  Sex: Female

DRUGS (1)
  1. FOSAMAX [Suspect]
     Indication: OSTEOPENIA
     Route: 048
     Dates: start: 20000101, end: 20080101

REACTIONS (26)
  - WEIGHT INCREASED [None]
  - ANKLE FRACTURE [None]
  - CARDIOMEGALY [None]
  - RHINITIS ALLERGIC [None]
  - OSTEOARTHRITIS [None]
  - HYPERLIPIDAEMIA [None]
  - GASTROOESOPHAGEAL REFLUX DISEASE [None]
  - DYSLIPIDAEMIA [None]
  - FEMUR FRACTURE [None]
  - HELICOBACTER INFECTION [None]
  - HYPERCHOLESTEROLAEMIA [None]
  - VENTRICULAR EXTRASYSTOLES [None]
  - OEDEMA PERIPHERAL [None]
  - DENTAL CARIES [None]
  - FRACTURE DELAYED UNION [None]
  - SEROMA [None]
  - BLOOD CHOLESTEROL INCREASED [None]
  - SLEEP DISORDER [None]
  - CONFUSIONAL STATE [None]
  - HYPERTENSION [None]
  - CUTIS LAXA [None]
  - EYELID PTOSIS [None]
  - AORTIC ARTERIOSCLEROSIS [None]
  - RENAL DISORDER [None]
  - METABOLIC SYNDROME [None]
  - FALL [None]
